FAERS Safety Report 16384832 (Version 1)
Quarter: 2019Q2

REPORT INFORMATION
  Report Type: Spontaneous
  Country: US (occurrence: US)
  Receive Date: 20190426
  Receipt Date: 20190426
  Transmission Date: 20190711
  Serious: Yes (Other)
  Sender: FDA-Public Use
  Company Number: None

PATIENT
  Age: 53 Year
  Sex: Female
  Weight: 53.52 kg

DRUGS (9)
  1. TRINTELLIX [Concomitant]
     Active Substance: VORTIOXETINE HYDROBROMIDE
  2. VITAMIN D3 [Concomitant]
     Active Substance: CHOLECALCIFEROL
  3. ATORVASTATIN [Concomitant]
     Active Substance: ATORVASTATIN
  4. GEODON [Suspect]
     Active Substance: ZIPRASIDONE HYDROCHLORIDE\ZIPRASIDONE MESYLATE
     Indication: DEPRESSION
     Dosage: ?          QUANTITY:80 MG MILLIGRAM(S);OTHER FREQUENCY:DAILY 2 PILLS/BEDT;?
     Route: 048
     Dates: start: 20130513
  5. GEODON [Suspect]
     Active Substance: ZIPRASIDONE HYDROCHLORIDE\ZIPRASIDONE MESYLATE
     Indication: AFFECTIVE DISORDER
     Dosage: ?          QUANTITY:80 MG MILLIGRAM(S);OTHER FREQUENCY:DAILY 2 PILLS/BEDT;?
     Route: 048
     Dates: start: 20130513
  6. MYRBETRIQ [Concomitant]
     Active Substance: MIRABEGRON
  7. HYDROZ [Concomitant]
  8. BUSPAR [Concomitant]
     Active Substance: BUSPIRONE HYDROCHLORIDE
  9. IBUPROFEN. [Concomitant]
     Active Substance: IBUPROFEN

REACTIONS (7)
  - Tremor [None]
  - Headache [None]
  - Withdrawal syndrome [None]
  - Irritability [None]
  - Disturbance in attention [None]
  - Insomnia [None]
  - Hyperhidrosis [None]

NARRATIVE: CASE EVENT DATE: 20171027
